FAERS Safety Report 23433284 (Version 1)
Quarter: 2024Q1

REPORT INFORMATION
  Report Type: Spontaneous
  Country: US (occurrence: US)
  Receive Date: 20240123
  Receipt Date: 20240123
  Transmission Date: 20240409
  Serious: Yes (Hospitalization, Other)
  Sender: FDA-Public Use
  Company Number: US-MLMSERVICE-20240110-4764876-1

PATIENT
  Sex: Female

DRUGS (2)
  1. ACETAMINOPHEN [Interacting]
     Active Substance: ACETAMINOPHEN
     Indication: Pain
     Dosage: 1000 MG, 6 HRS
     Route: 048
  2. WARFARIN [Interacting]
     Active Substance: WARFARIN
     Indication: Anticoagulant therapy
     Dosage: UNK
     Route: 065

REACTIONS (4)
  - Swelling [Unknown]
  - Anticoagulation drug level above therapeutic [Recovered/Resolved]
  - Drug interaction [Recovered/Resolved]
  - Haemorrhage [Recovered/Resolved]
